FAERS Safety Report 5290961-3 (Version None)
Quarter: 2007Q2

REPORT INFORMATION
  Report Type: 
  Country: None (occurrence: None)
  Receive Date: 20070409
  Receipt Date: 20070330
  Transmission Date: 20071010
  Serious: Yes (Hospitalization)
  Sender: FDA-Public Use
  Company Number: JP-ROCHE-485814

PATIENT
  Age: 32 Year
  Sex: Male

DRUGS (1)
  1. TAMIFLU [Suspect]
     Route: 048
     Dates: start: 20070222, end: 20070222

REACTIONS (8)
  - ABNORMAL BEHAVIOUR [None]
  - CONFUSIONAL STATE [None]
  - DISCOMFORT [None]
  - FALL [None]
  - FOOT FRACTURE [None]
  - LIMB INJURY [None]
  - PALPITATIONS [None]
  - RESTLESSNESS [None]
